FAERS Safety Report 21092701 (Version 1)
Quarter: 2022Q3

REPORT INFORMATION
  Report Type: Report from Study
  Country: ZA (occurrence: ZA)
  Receive Date: 20220718
  Receipt Date: 20220718
  Transmission Date: 20221027
  Serious: Yes (Hospitalization)
  Sender: FDA-Public Use
  Company Number: ZA-NOVARTISPH-NVSC2022ZA122436

PATIENT
  Sex: Male

DRUGS (2)
  1. BROLUCIZUMAB [Suspect]
     Active Substance: BROLUCIZUMAB
     Indication: Neovascular age-related macular degeneration
     Dosage: 27.6 MG, QMO, OTHER DOSAGE, 27.6MG IN 0.23ML
     Route: 047
     Dates: start: 20220404
  2. BROLUCIZUMAB [Suspect]
     Active Substance: BROLUCIZUMAB
     Dosage: 27.6 MG, QMO, OTHER DOSAGE, 27.6MG IN 0.23ML
     Route: 047
     Dates: start: 20220608

REACTIONS (1)
  - Illness [Unknown]
